FAERS Safety Report 4299450-6 (Version None)
Quarter: 2004Q1

REPORT INFORMATION
  Report Type: 
  Country: None (occurrence: None)
  Receive Date: 20040217
  Receipt Date: 20040130
  Transmission Date: 20041129
  Serious: Yes (Hospitalization)
  Sender: FDA-Public Use
  Company Number: S04-SWI-00524-01

PATIENT
  Age: 81 Year
  Sex: Female

DRUGS (5)
  1. SEROPRAM (CITALOPRAM HYDROBROMIDE) [Suspect]
     Dosage: 20 MG QD PO
     Route: 048
     Dates: end: 20040115
  2. ASPIRIN [Suspect]
     Dosage: 100 MG QD PO
     Route: 048
     Dates: end: 20040115
  3. SINTROM [Suspect]
     Dates: start: 20031201, end: 20040115
  4. SINTROM [Suspect]
     Dates: end: 20031101
  5. SIMFONA(GINKGO BILOBA EXTRACT) [Suspect]
     Dosage: 60 MG BID PO
     Route: 048
     Dates: end: 20040115

REACTIONS (4)
  - ANAEMIA [None]
  - DEVICE FAILURE [None]
  - PROTHROMBIN TIME PROLONGED [None]
  - RETROPERITONEAL HAEMATOMA [None]
